FAERS Safety Report 6000335-5 (Version None)
Quarter: 2008Q4

REPORT INFORMATION
  Report Type: 
  Country: None (occurrence: None)
  Receive Date: 20081211
  Receipt Date: 20081211
  Transmission Date: 20090506
  Serious: Yes (Other)
  Sender: FDA-Public Use
  Company Number: None

PATIENT
  Age: 33 Year
  Sex: Female
  Weight: 47.6277 kg

DRUGS (1)
  1. CETIRIZINE HCL [Suspect]
     Indication: HYPERSENSITIVITY
     Dosage: 10 MG DAILY PO
     Route: 048
     Dates: start: 20070905, end: 20081209

REACTIONS (7)
  - ABDOMINAL PAIN [None]
  - ORAL DISCOMFORT [None]
  - ORAL PRURITUS [None]
  - PRURITUS GENERALISED [None]
  - THROAT IRRITATION [None]
  - URTICARIA [None]
  - WEIGHT DECREASED [None]
